FAERS Safety Report 7202000 (Version 35)
Quarter: 2013Q4

REPORT INFORMATION
  Report Type: Report from Study
  Country: CA (occurrence: CA)
  Receive Date: 20091207
  Receipt Date: 20131127
  Transmission Date: 20140711
  Serious: Yes (Hospitalization, Other)
  Sender: FDA-Public Use
  Company Number: PHHY2009CA19259

PATIENT
  Age: 76 Year
  Sex: Female

DRUGS (4)
  1. SANDOSTATIN LAR [Suspect]
     Indication: ACROMEGALY
     Dosage: 30 MG, EVERY 4 WEEKS
     Route: 030
     Dates: start: 20041103
  2. SANDOSTATIN LAR [Suspect]
     Dosage: 40 MG, EVERY 4 WEEKS
     Route: 030
  3. SANDOSTATIN LAR [Suspect]
     Dosage: 50 MG, EVERY 2 WEEKS
     Route: 030
  4. SANDOSTATIN LAR [Suspect]
     Dosage: 40 MG, EVERY 4 WEEKS
     Route: 030

REACTIONS (44)
  - Hyponatraemia [Unknown]
  - Fall [Not Recovered/Not Resolved]
  - Ear infection [Unknown]
  - Eyelid ptosis [Recovering/Resolving]
  - Eyelid function disorder [Unknown]
  - Hordeolum [Unknown]
  - Visual impairment [Not Recovered/Not Resolved]
  - Insulin-like growth factor increased [Unknown]
  - Pain in jaw [Unknown]
  - Thyroid disorder [Not Recovered/Not Resolved]
  - Vomiting [Unknown]
  - Neoplasm progression [Unknown]
  - Hypoaesthesia [Unknown]
  - Feeling cold [Unknown]
  - Sneezing [Unknown]
  - Dizziness [Unknown]
  - Headache [Not Recovered/Not Resolved]
  - Depression [Unknown]
  - Eyelid infection [Unknown]
  - Eyelid oedema [Recovering/Resolving]
  - Diplopia [Unknown]
  - Musculoskeletal stiffness [Unknown]
  - Haemoglobin decreased [Unknown]
  - Energy increased [Not Recovered/Not Resolved]
  - Contusion [Unknown]
  - Stress [Unknown]
  - Injection site haemorrhage [Recovering/Resolving]
  - Blood pressure systolic increased [Unknown]
  - Panic reaction [Unknown]
  - Arthralgia [Unknown]
  - Eye disorder [Recovering/Resolving]
  - Emotional disorder [Unknown]
  - Neck pain [Unknown]
  - Malaise [Unknown]
  - Pallor [Unknown]
  - Eye infection [Recovering/Resolving]
  - Anxiety [Unknown]
  - Muscle spasms [Unknown]
  - Depressed mood [Unknown]
  - Nuclear magnetic resonance imaging abnormal [Unknown]
  - Cell marker increased [Unknown]
  - Abdominal discomfort [Unknown]
  - Fatigue [Unknown]
  - General physical health deterioration [Unknown]
